FAERS Safety Report 6402059-9 (Version None)
Quarter: 2009Q4

REPORT INFORMATION
  Report Type: 
  Country: None (occurrence: None)
  Receive Date: 20091015
  Receipt Date: 20091007
  Transmission Date: 20100525
  Serious: Yes (Other)
  Sender: FDA-Public Use
  Company Number: JP-BRISTOL-MYERS SQUIBB COMPANY-14774020

PATIENT
  Age: 24 Year
  Sex: Female
  Weight: 51 kg

DRUGS (4)
  1. ABILIFY [Suspect]
     Indication: SCHIZOPHRENIA
     Dosage: 12MG(FEB08-10MAR09);6MG(11MAR-31MAR09(21DAYS));12MG(01APR09-ONG)
     Route: 048
     Dates: start: 20080201
  2. AMOBAN [Concomitant]
     Dosage: FORM:TABLET
     Dates: end: 20090204
  3. BROTIZOLAM [Concomitant]
     Dosage: FORM:TABLET
     Dates: end: 20090114
  4. PROMETHAZINE HCL [Concomitant]
     Dosage: FORM:TABLET
     Dates: end: 20090618

REACTIONS (3)
  - CAESAREAN SECTION [None]
  - NORMAL NEWBORN [None]
  - PREGNANCY [None]
